FAERS Safety Report 7243198-2 (Version None)
Quarter: 2011Q1

REPORT INFORMATION
  Report Type: 
  Country: None (occurrence: None)
  Receive Date: 20110125
  Receipt Date: 20091120
  Transmission Date: 20110831
  Serious: Yes (Congenital Anomaly)
  Sender: FDA-Public Use
  Company Number: GB-ROCHE-658530

PATIENT
  Sex: Male
  Weight: 2.7 kg

DRUGS (7)
  1. NORVIR [Suspect]
     Indication: HIV INFECTION
     Route: 064
     Dates: start: 20060411
  2. VIRAMUNE [Suspect]
     Indication: HIV INFECTION
     Route: 064
     Dates: end: 20051225
  3. KIVEXA [Suspect]
     Indication: ANTIVIRAL TREATMENT
     Route: 064
     Dates: end: 20051225
  4. COMBIVIR [Suspect]
     Indication: HIV INFECTION
     Dosage: DOSE REPORTED 2DF
     Route: 064
     Dates: start: 20060411
  5. VIRAMUNE [Suspect]
     Route: 064
  6. KIVEXA [Suspect]
     Route: 064
  7. INVIRASE [Suspect]
     Indication: HIV INFECTION
     Route: 064
     Dates: start: 20060411

REACTIONS (3)
  - ALPHA 1 FOETOPROTEIN INCREASED [None]
  - NORMAL NEWBORN [None]
  - ALPHA 1 FOETOPROTEIN ABNORMAL [None]
